FAERS Safety Report 23191458 (Version 2)
Quarter: 2023Q4

REPORT INFORMATION
  Report Type: Other
  Country: US (occurrence: None)
  Receive Date: 20231116
  Receipt Date: 20231124
  Transmission Date: 20240109
  Serious: Yes (Disabling)
  Sender: FDA-Public Use
  Company Number: US-ROCHE-3455791

PATIENT
  Age: 30 Year
  Sex: Male
  Weight: 45.4 kg

DRUGS (1)
  1. EVRYSDI [Suspect]
     Active Substance: RISDIPLAM
     Indication: Spinal muscular atrophy
     Route: 048
     Dates: start: 20211217

REACTIONS (2)
  - Nephrolithiasis [Not Recovered/Not Resolved]
  - Urinary tract infection [Recovered/Resolved]

NARRATIVE: CASE EVENT DATE: 20231028
